FAERS Safety Report 6961475-7 (Version None)
Quarter: 2010Q3

REPORT INFORMATION
  Report Type: 
  Country: None (occurrence: None)
  Receive Date: 20100901
  Receipt Date: 20100823
  Transmission Date: 20110219
  Serious: Yes (Hospitalization)
  Sender: FDA-Public Use
  Company Number: US-CELGENEUS-163-20785-10072205

PATIENT
  Sex: Male

DRUGS (3)
  1. THALOMID [Suspect]
     Route: 048
     Dates: start: 20100625, end: 20100727
  2. TAXOTERE [Concomitant]
     Indication: PRODUCT USED FOR UNKNOWN INDICATION
     Route: 065
     Dates: start: 20100615, end: 20100727
  3. LEUKINE [Concomitant]
     Indication: PRODUCT USED FOR UNKNOWN INDICATION
     Route: 065
     Dates: start: 20100615, end: 20100727

REACTIONS (5)
  - CONFUSIONAL STATE [None]
  - DECREASED APPETITE [None]
  - MANIA [None]
  - MIDDLE INSOMNIA [None]
  - SPEECH DISORDER [None]
